FAERS Safety Report 4458216-4 (Version None)
Quarter: 2004Q3

REPORT INFORMATION
  Report Type: 
  Country: None (occurrence: None)
  Receive Date: 20040917
  Receipt Date: 20040608
  Transmission Date: 20050211
  Serious: Yes (Other)
  Sender: FDA-Public Use
  Company Number: US-JNJFOC-20040304012

PATIENT
  Age: 53 Year
  Sex: Female

DRUGS (3)
  1. TOPAMAX [Suspect]
     Indication: AFFECTIVE DISORDER
     Dosage: 300 MG, IN 1 DAY
     Dates: start: 20030422, end: 20040303
  2. WELLBUTRIN [Suspect]
     Indication: DEPRESSION
     Dosage: 200 MG, 2 IN 1 DAY
  3. LEXAPRO [Suspect]
     Indication: DEPRESSION
     Dosage: 20 MG, IN 1 DAY

REACTIONS (1)
  - THROMBOCYTOPENIA [None]
